FAERS Safety Report 4470657-8 (Version None)
Quarter: 2004Q4

REPORT INFORMATION
  Report Type: 
  Country: None (occurrence: None)
  Receive Date: 20041005
  Receipt Date: 20040923
  Transmission Date: 20050328
  Serious: Yes (Hospitalization, Disabling)
  Sender: FDA-Public Use
  Company Number: 200304633

PATIENT
  Age: 45 Year
  Sex: Female
  Weight: 59 kg

DRUGS (1)
  1. PRED FORTE [Suspect]
     Indication: IRITIS
     Dates: start: 20020731, end: 20021111

REACTIONS (8)
  - BLINDNESS UNILATERAL [None]
  - FALL [None]
  - MYDRIASIS [None]
  - NERVE INJURY [None]
  - OPEN ANGLE GLAUCOMA [None]
  - OPTIC ATROPHY [None]
  - THERAPY NON-RESPONDER [None]
  - VISUAL ACUITY REDUCED [None]
